FAERS Safety Report 10950049 (Version 1)
Quarter: 2015Q1

REPORT INFORMATION
  Report Type: Spontaneous
  Country: HR (occurrence: HR)
  Receive Date: 20150324
  Receipt Date: 20150324
  Transmission Date: 20150721
  Serious: Yes (Other)
  Sender: FDA-Public Use
  Company Number: HR-GLAXOSMITHKLINE-HR2015GSK037773

PATIENT
  Age: 58 Year
  Sex: Female
  Weight: 130 kg

DRUGS (8)
  1. VENTOLINE AEROSOL [Suspect]
     Active Substance: ALBUTEROL
     Indication: ASTHMA
     Dosage: 800 UG, QD
     Dates: start: 20150203
  2. SYMBICORT [Concomitant]
     Active Substance: BUDESONIDE\FORMOTEROL FUMARATE DIHYDRATE
     Dosage: UNK UG, UNK
     Route: 055
  3. SPIRIVA [Concomitant]
     Active Substance: TIOTROPIUM BROMIDE MONOHYDRATE
     Dosage: 18 UG, UNK
     Route: 055
  4. PROTECTA [Concomitant]
     Dosage: 20 MG, UNK
     Route: 048
  5. LORISTA [Concomitant]
     Active Substance: LOSARTAN POTASSIUM
     Route: 048
  6. ZIPANTOLA [Concomitant]
     Dosage: 40 MG, UNK
     Route: 048
  7. EUTHYROX [Concomitant]
     Active Substance: LEVOTHYROXINE SODIUM
     Dosage: 125 UG, UNK
     Route: 048
  8. KALIJEV KLORID [Concomitant]
     Dosage: 500 MG, UNK
     Route: 048

REACTIONS (3)
  - Erythema [Recovered/Resolved]
  - Generalised erythema [Recovered/Resolved]
  - Pruritus generalised [Recovered/Resolved]

NARRATIVE: CASE EVENT DATE: 20150203
